FAERS Safety Report 9484755 (Version 1)
Quarter: 2013Q3

REPORT INFORMATION
  Report Type: Spontaneous
  Country: US (occurrence: US)
  Receive Date: 20130828
  Receipt Date: 20130828
  Transmission Date: 20140515
  Serious: Yes (Other)
  Sender: FDA-Public Use
  Company Number: US-GLAXOSMITHKLINE-A1038762A

PATIENT
  Sex: Male

DRUGS (2)
  1. ADVAIR [Suspect]
     Indication: ASTHMA
     Route: 064
  2. NO CONCURRENT MEDICATION [Concomitant]

REACTIONS (3)
  - Cerebral palsy [Unknown]
  - Premature baby [Unknown]
  - Foetal exposure during pregnancy [Unknown]
